FAERS Safety Report 13028017 (Version 2)
Quarter: 2016Q4

REPORT INFORMATION
  Report Type: Spontaneous
  Country: US (occurrence: US)
  Receive Date: 20161214
  Receipt Date: 20161219
  Transmission Date: 20170207
  Serious: Yes (Other)
  Sender: FDA-Public Use
  Company Number: US-PFIZER INC-2016571727

PATIENT
  Sex: Male

DRUGS (2)
  1. EFFEXOR XR [Suspect]
     Active Substance: VENLAFAXINE HYDROCHLORIDE
     Dosage: 150 MG, 3X/DAY
  2. EFFEXOR XR [Suspect]
     Active Substance: VENLAFAXINE HYDROCHLORIDE
     Indication: DEPRESSION
     Dosage: 150 MG, 4X/DAY
     Dates: start: 2011

REACTIONS (5)
  - Amnesia [Unknown]
  - Prescribed overdose [Unknown]
  - Drug abuse [Unknown]
  - Feeling abnormal [Unknown]
  - Euphoric mood [Unknown]

NARRATIVE: CASE EVENT DATE: 201612
